FAERS Safety Report 7916724-5 (Version None)
Quarter: 2011Q4

REPORT INFORMATION
  Report Type: 
  Country: None (occurrence: None)
  Receive Date: 20111114
  Receipt Date: 20111028
  Transmission Date: 20120403
  Serious: Yes (Other)
  Sender: FDA-Public Use
  Company Number: DSA_48032_2011

PATIENT
  Age: 22 Year
  Sex: Male

DRUGS (4)
  1. VENLAFAXINE [Suspect]
     Indication: NARCOLEPSY
     Dosage: (75 MG, FREQUENCY UNKNOWN)
  2. VENLAFAXINE [Suspect]
     Indication: CATAPLEXY
     Dosage: (75 MG, FREQUENCY UNKNOWN)
  3. MODAFINIL [Suspect]
     Indication: NARCOLEPSY
     Dosage: (300 MG, 200 MG EACH MORNING AND 100MG AT MIDDAY), (DF)
  4. MODAFINIL [Suspect]
     Indication: CATAPLEXY
     Dosage: (300 MG, 200 MG EACH MORNING AND 100MG AT MIDDAY), (DF)

REACTIONS (4)
  - BIPOLAR DISORDER [None]
  - MANIA [None]
  - PATHOLOGICAL GAMBLING [None]
  - GRANDIOSITY [None]
